FAERS Safety Report 9084500 (Version 2)
Quarter: 2013Q1

REPORT INFORMATION
  Report Type: Spontaneous
  Country: CA (occurrence: CA)
  Receive Date: 20130131
  Receipt Date: 20130319
  Transmission Date: 20140127
  Serious: Yes (Other)
  Sender: FDA-Public Use
  Company Number: CA-PFIZER INC-2013030493

PATIENT
  Age: 78 Year
  Sex: Male

DRUGS (3)
  1. TOVIAZ [Suspect]
     Dosage: 4 MG, UNK
  2. FLOMAX ^BOEHRINGER INGELHEIM^ [Suspect]
     Dosage: UNK
  3. LASIX [Concomitant]
     Dosage: UNK

REACTIONS (7)
  - Hypotension [Recovered/Resolved]
  - Chest discomfort [Recovered/Resolved]
  - Blood pressure increased [Unknown]
  - Eye discharge [Unknown]
  - Ocular hyperaemia [Unknown]
  - Penis disorder [Unknown]
  - Dysuria [Unknown]
